FAERS Safety Report 24188758 (Version 1)
Quarter: 2024Q3

REPORT INFORMATION
  Report Type: Spontaneous
  Country: US (occurrence: US)
  Receive Date: 20240808
  Receipt Date: 20240808
  Transmission Date: 20241017
  Serious: No
  Sender: OTSUKA
  Company Number: US-OTSUKA-2024_003588

PATIENT
  Sex: Male
  Weight: 86.18 kg

DRUGS (1)
  1. ABILIFY MAINTENA [Suspect]
     Active Substance: ARIPIPRAZOLE
     Indication: Schizoaffective disorder
     Dosage: 400 MG, EVERY 4 WEEKS
     Route: 065
     Dates: start: 2021

REACTIONS (4)
  - Tremor [Unknown]
  - Restlessness [Unknown]
  - Dyskinesia [Unknown]
  - Off label use [Unknown]
